FAERS Safety Report 8245868-6 (Version None)
Quarter: 2012Q1

REPORT INFORMATION
  Report Type: 
  Country: None (occurrence: None)
  Receive Date: 20120328
  Receipt Date: 20120328
  Transmission Date: 20120608
  Serious: Yes (Other)
  Sender: FDA-Public Use
  Company Number: None

PATIENT
  Age: 66 Year
  Sex: Female
  Weight: 55 kg

DRUGS (2)
  1. ALENDRONATE SODIUM [Suspect]
     Indication: POSTMENOPAUSE
     Dosage: 70MG ONCE A WEEK BY MOUTH
     Route: 048
  2. ALENDRONATE SODIUM [Suspect]
     Indication: BONE LOSS
     Dosage: 70MG ONCE A WEEK BY MOUTH
     Route: 048

REACTIONS (4)
  - TEMPOROMANDIBULAR JOINT SYNDROME [None]
  - ARTICULAR DISC DISORDER [None]
  - OSTEOARTHRITIS [None]
  - BONE MARROW DISORDER [None]
